FAERS Safety Report 24214878 (Version 1)
Quarter: 2024Q3

REPORT INFORMATION
  Report Type: Spontaneous
  Country: PT (occurrence: PT)
  Receive Date: 20240815
  Receipt Date: 20240815
  Transmission Date: 20241016
  Serious: Yes (Other)
  Sender: TEVA
  Company Number: PT-TEVA-VS-3231660

PATIENT
  Age: 68 Year
  Sex: Female

DRUGS (1)
  1. TRAZODONE [Suspect]
     Active Substance: TRAZODONE HYDROCHLORIDE
     Indication: Paraganglion neoplasm
     Route: 065

REACTIONS (1)
  - Metanephrine urine increased [Unknown]
